FAERS Safety Report 21040548 (Version 1)
Quarter: 2022Q3

REPORT INFORMATION
  Report Type: Spontaneous
  Country: US (occurrence: US)
  Receive Date: 20220704
  Receipt Date: 20220704
  Transmission Date: 20221027
  Serious: No
  Sender: FDA-Public Use
  Company Number: US-SANOFI-01170523

PATIENT
  Age: 94 Year
  Sex: Female

DRUGS (1)
  1. XYZAL ALLERGY 24HR [Suspect]
     Active Substance: LEVOCETIRIZINE DIHYDROCHLORIDE
     Dosage: UNK (TOOK XYZAL AT 9PM LAST NIGHT AND THEN AT 8AM AGAIN THIS MORNING)

REACTIONS (1)
  - Inappropriate schedule of product administration [Unknown]
